FAERS Safety Report 4391036-8 (Version None)
Quarter: 2004Q2

REPORT INFORMATION
  Report Type: 
  Country: None (occurrence: None)
  Receive Date: 20040621
  Receipt Date: 20031203
  Transmission Date: 20050107
  Serious: Yes (Death, Other)
  Sender: FDA-Public Use
  Company Number: USA-2003-0011361

PATIENT
  Age: 22 Year
  Sex: Male

DRUGS (1)
  1. OXYCONTIN [Suspect]
     Indication: PAIN

REACTIONS (6)
  - ACCIDENTAL OVERDOSE [None]
  - CARDIAC ARREST [None]
  - DRUG ABUSER [None]
  - EMOTIONAL DISTRESS [None]
  - INFLUENZA LIKE ILLNESS [None]
  - PAIN [None]
